FAERS Safety Report 5671218-5 (Version None)
Quarter: 2008Q1

REPORT INFORMATION
  Report Type: 
  Country: None (occurrence: None)
  Receive Date: 20080317
  Receipt Date: 20080317
  Transmission Date: 20080703
  Serious: Yes (Other)
  Sender: FDA-Public Use
  Company Number: None

PATIENT
  Age: 55 Year
  Sex: Female
  Weight: 68.0396 kg

DRUGS (5)
  1. BUPROPRION XL (300MG) - GENERIC [Suspect]
     Indication: MAJOR DEPRESSION
     Dosage: 300 MG PO QD, QAM
     Route: 048
     Dates: start: 20061109, end: 20080314
  2. PROMETRIUM [Concomitant]
  3. CLIMARA [Concomitant]
  4. VITAMIN CAP [Concomitant]
  5. UNISOM (BENADRYL) [Concomitant]

REACTIONS (4)
  - ANXIETY [None]
  - ASTHENIA [None]
  - HYPERSOMNIA [None]
  - PHARMACEUTICAL PRODUCT COMPLAINT [None]
